FAERS Safety Report 13375059 (Version 1)
Quarter: 2017Q1

REPORT INFORMATION
  Report Type: Not Available
  Country: US (occurrence: US)
  Receive Date: 20170327
  Receipt Date: 20170327
  Transmission Date: 20170429
  Serious: No
  Sender: FDA-Public Use
  Company Number: US-ANIPHARMA-2016-US-005397

PATIENT
  Age: 72 Year
  Sex: Female
  Weight: 93.44 kg

DRUGS (1)
  1. INDERAL LA [Suspect]
     Active Substance: PROPRANOLOL HYDROCHLORIDE
     Dosage: 1 CAPSULE AT BEDTIME
     Route: 048
     Dates: start: 1997

REACTIONS (2)
  - Drug ineffective [Unknown]
  - Migraine [None]
